FAERS Safety Report 5026104-0 (Version None)
Quarter: 2006Q2

REPORT INFORMATION
  Report Type: 
  Country: None (occurrence: None)
  Receive Date: 20060614
  Receipt Date: 20051123
  Transmission Date: 20061013
  Serious: Yes (Death, Hospitalization, Disabling)
  Sender: FDA-Public Use
  Company Number: US-ROCHE-426618

PATIENT
  Age: 16 Year
  Sex: Female
  Weight: 68 kg

DRUGS (11)
  1. ACCUTANE [Suspect]
     Indication: ACNE
     Route: 048
     Dates: start: 19930815, end: 19931130
  2. ACCUTANE [Suspect]
     Dosage: ACCUTANE 40 - 80 ALTERNATING.
     Route: 048
     Dates: start: 19930716
  3. ASACOL [Concomitant]
  4. IMURAN [Concomitant]
  5. PREDNISONE [Concomitant]
     Indication: AUTOIMMUNE HEPATITIS
  6. PHENERGAN HCL [Concomitant]
  7. CIPRO [Concomitant]
  8. TEGRETOL [Concomitant]
  9. DEMEROL [Concomitant]
  10. METHADONE HCL [Concomitant]
  11. CORTISOL [Concomitant]

REACTIONS (115)
  - ACIDOSIS [None]
  - ADRENOCORTICAL INSUFFICIENCY ACUTE [None]
  - AFFECTIVE DISORDER [None]
  - AMMONIA INCREASED [None]
  - ANAEMIA [None]
  - ANXIETY [None]
  - APHTHOUS STOMATITIS [None]
  - APPENDICECTOMY [None]
  - ARTHRALGIA [None]
  - ASTHENIA [None]
  - ATELECTASIS [None]
  - ATRIOVENTRICULAR BLOCK FIRST DEGREE [None]
  - AUTOIMMUNE DISORDER [None]
  - AUTOIMMUNE HEPATITIS [None]
  - BLISTER [None]
  - BRONCHITIS [None]
  - BUNDLE BRANCH BLOCK [None]
  - CELLULITIS [None]
  - CHOLECYSTITIS [None]
  - COAGULOPATHY [None]
  - COLITIS [None]
  - COLITIS ULCERATIVE [None]
  - CONDYLOMA ACUMINATUM [None]
  - CONSTIPATION [None]
  - CONTUSION [None]
  - CONVULSION [None]
  - COSTOVERTEBRAL ANGLE TENDERNESS [None]
  - CROHN'S DISEASE [None]
  - DEEP VEIN THROMBOSIS [None]
  - DEHYDRATION [None]
  - DEPRESSION [None]
  - DIABETES MELLITUS [None]
  - DIABETIC ULCER [None]
  - DRUG ABUSER [None]
  - DRUG DEPENDENCE [None]
  - DYSPHAGIA [None]
  - DYSPNOEA [None]
  - ENCEPHALOPATHY [None]
  - ENDOMETRIOSIS [None]
  - ENTEROCOCCAL INFECTION [None]
  - ERYTHEMA [None]
  - FLANK PAIN [None]
  - GASTRIC VARICES HAEMORRHAGE [None]
  - GASTROENTERITIS [None]
  - GASTROINTESTINAL DISORDER [None]
  - GRAND MAL CONVULSION [None]
  - HAEMATOMA INFECTION [None]
  - HAEMATURIA [None]
  - HAEMORRHOIDS [None]
  - HEPATIC CIRRHOSIS [None]
  - HEPATIC ENCEPHALOPATHY [None]
  - HEPATIC FAILURE [None]
  - HYPERBILIRUBINAEMIA [None]
  - HYPERSENSITIVITY [None]
  - HYPOCALCAEMIA [None]
  - HYPOKALAEMIA [None]
  - INCISION SITE COMPLICATION [None]
  - INFECTIOUS MONONUCLEOSIS [None]
  - INFLAMMATORY BOWEL DISEASE [None]
  - INSOMNIA [None]
  - INSULIN RESISTANCE [None]
  - INTESTINAL HAEMORRHAGE [None]
  - IRRITABLE BOWEL SYNDROME [None]
  - JOINT SWELLING [None]
  - LACERATION [None]
  - LEUKOCYTOCLASTIC VASCULITIS [None]
  - LEUKOPLAKIA [None]
  - MULTI-ORGAN DISORDER [None]
  - MUSCULOSKELETAL PAIN [None]
  - NAUSEA [None]
  - NEPHROLITHIASIS [None]
  - NODULE [None]
  - OBSESSIVE-COMPULSIVE DISORDER [None]
  - OEDEMA PERIPHERAL [None]
  - OESOPHAGEAL VARICES HAEMORRHAGE [None]
  - ORAL CANDIDIASIS [None]
  - ORAL INTAKE REDUCED [None]
  - OVARIAN CYST RUPTURED [None]
  - OVERDOSE [None]
  - PANCYTOPENIA [None]
  - PARONYCHIA [None]
  - PERIRECTAL ABSCESS [None]
  - PERITONITIS [None]
  - PHARYNGITIS [None]
  - PNEUMONIA [None]
  - PNEUMONITIS [None]
  - PORTAL HYPERTENSION [None]
  - PORTAL HYPERTENSIVE GASTROPATHY [None]
  - PYELONEPHRITIS [None]
  - RASH [None]
  - RAYNAUD'S PHENOMENON [None]
  - RENAL DISORDER [None]
  - RENAL FAILURE [None]
  - RENAL FAILURE ACUTE [None]
  - RHINITIS ALLERGIC [None]
  - SELF ESTEEM DECREASED [None]
  - SEPSIS [None]
  - SINUSITIS [None]
  - SJOGREN'S SYNDROME [None]
  - SOMNOLENCE [None]
  - SPLENOMEGALY [None]
  - STAPHYLOCOCCAL INFECTION [None]
  - SYNOVITIS [None]
  - SYSTEMIC LUPUS ERYTHEMATOSUS [None]
  - TACHYCARDIA [None]
  - TENDONITIS [None]
  - THROMBOCYTOPENIA [None]
  - THROMBOSIS [None]
  - TRACHEOBRONCHITIS [None]
  - UMBILICAL HERNIA [None]
  - URINARY TRACT INFECTION [None]
  - VAGINAL HAEMORRHAGE [None]
  - VAGINAL INFECTION [None]
  - VIRAL INFECTION [None]
  - WEIGHT INCREASED [None]
